FAERS Safety Report 5761046-4 (Version None)
Quarter: 2008Q2

REPORT INFORMATION
  Report Type: 
  Country: None (occurrence: None)
  Receive Date: 20080606
  Receipt Date: 20070926
  Transmission Date: 20081010
  Serious: No
  Sender: FDA-Public Use
  Company Number: US-ASTRAZENECA-2007UW22544

PATIENT
  Age: 67 Year
  Sex: Female
  Weight: 86.2 kg

DRUGS (8)
  1. PRILOSEC [Suspect]
     Indication: GASTRIC DISORDER
     Route: 048
  2. ROBAXIN [Concomitant]
  3. VERAPAMIL [Concomitant]
  4. ALLERGY PILLS OTC [Concomitant]
  5. HYDROCHLOROTHIAZIDE [Concomitant]
  6. NAPROXEN [Concomitant]
  7. PEPCID OTC [Concomitant]
  8. HYDROCODONE WITH TYLENOL [Concomitant]
     Dosage: 5MG TO 325 MG

REACTIONS (1)
  - FREQUENT BOWEL MOVEMENTS [None]
